FAERS Safety Report 8434391-1 (Version None)
Quarter: 2012Q2

REPORT INFORMATION
  Report Type: 
  Country: None (occurrence: None)
  Receive Date: 20120613
  Receipt Date: 20120502
  Transmission Date: 20120825
  Serious: Yes (Hospitalization)
  Sender: FDA-Public Use
  Company Number: PHHY2012CH037700

PATIENT
  Age: 47 Year
  Sex: Female

DRUGS (14)
  1. PROGRAF [Concomitant]
     Dosage: 0.25 MG, BID
     Route: 048
     Dates: start: 20120111
  2. DIFLUCAN [Concomitant]
     Dosage: 400 MG, UNK
     Route: 048
     Dates: end: 20120109
  3. CITALOPRAM HYDROBROMIDE [Concomitant]
     Dosage: 10 MG, UNK
     Dates: start: 20120102, end: 20120109
  4. PROGRAF [Concomitant]
     Dosage: 0.5 MG, BID
     Dates: start: 20120113
  5. AMILORIDE HCL AND HYDROCHLOROTHIAZIDE [Concomitant]
     Indication: ESSENTIAL HYPERTENSION
     Dosage: 25 MG, UNK
     Route: 048
     Dates: end: 20120109
  6. ACETAMINOPHEN [Concomitant]
     Dosage: 1000 MG, QID
     Route: 048
  7. BELOC MITE [Concomitant]
     Dosage: 25 MG, UNK
     Route: 048
  8. MYFORTIC [Suspect]
     Indication: BONE MARROW TRANSPLANT
     Dosage: 750 MG, BID
     Route: 048
  9. VALCYTE [Concomitant]
     Indication: CYTOMEGALOVIRUS INFECTION
     Dosage: 450 MG, BID
     Route: 048
     Dates: end: 20120109
  10. NEXIUM [Concomitant]
     Dosage: 40 MG, UNK
     Route: 048
  11. PROGRAF [Concomitant]
     Indication: BONE MARROW TRANSPLANT
     Dosage: 0.5 MG, UNK
     Route: 048
     Dates: start: 20110701, end: 20120109
  12. DIFLUCAN [Concomitant]
     Dosage: 200 MG, UNK
     Route: 048
     Dates: start: 20030101
  13. PREDNISONE TAB [Concomitant]
     Dosage: 7.5 MG, UNK
     Route: 048
  14. ATOVAQUONE [Concomitant]
     Dosage: 1500 MG, UNK
     Route: 048

REACTIONS (2)
  - RENAL FAILURE ACUTE [None]
  - IMMUNOSUPPRESSANT DRUG LEVEL INCREASED [None]
